FAERS Safety Report 23138874 (Version 18)
Quarter: 2025Q2

REPORT INFORMATION
  Report Type: Report from Study
  Country: CA (occurrence: CA)
  Receive Date: 20231102
  Receipt Date: 20250613
  Transmission Date: 20250717
  Serious: Yes (Hospitalization, Other)
  Sender: OTSUKA
  Company Number: CA-OTSUKA-2023_012743

PATIENT
  Age: 54 Year
  Sex: Female

DRUGS (4)
  1. ARIPIPRAZOLE [Suspect]
     Active Substance: ARIPIPRAZOLE
     Indication: Product used for unknown indication
     Route: 030
  2. ARIPIPRAZOLE [Suspect]
     Active Substance: ARIPIPRAZOLE
     Route: 030
     Dates: start: 20230511
  3. ARIPIPRAZOLE [Suspect]
     Active Substance: ARIPIPRAZOLE
     Route: 030
  4. ARIPIPRAZOLE [Suspect]
     Active Substance: ARIPIPRAZOLE
     Route: 030
     Dates: start: 20211006

REACTIONS (24)
  - Paranoia [Recovered/Resolved]
  - Hallucination, auditory [Not Recovered/Not Resolved]
  - Hallucination [Not Recovered/Not Resolved]
  - Delusion [Not Recovered/Not Resolved]
  - Skin disorder [Not Recovered/Not Resolved]
  - Skin discolouration [Not Recovered/Not Resolved]
  - Paranoia [Not Recovered/Not Resolved]
  - Soliloquy [Not Recovered/Not Resolved]
  - Acne pustular [Not Recovered/Not Resolved]
  - Viral infection [Recovering/Resolving]
  - Mood swings [Not Recovered/Not Resolved]
  - Irritability [Not Recovered/Not Resolved]
  - Memory impairment [Not Recovered/Not Resolved]
  - Memory impairment [Not Recovered/Not Resolved]
  - Aggression [Not Recovered/Not Resolved]
  - Aggression [Unknown]
  - Acne [Not Recovered/Not Resolved]
  - Blood glucose fluctuation [Unknown]
  - Anxiety [Recovered/Resolved]
  - Anxiety [Unknown]
  - Fatigue [Recovering/Resolving]
  - Insomnia [Not Recovered/Not Resolved]
  - Inappropriate schedule of product administration [Unknown]
  - Lack of application site rotation [Not Recovered/Not Resolved]

NARRATIVE: CASE EVENT DATE: 20230511
